FAERS Safety Report 10769737 (Version 3)
Quarter: 2015Q1

REPORT INFORMATION
  Report Type: Spontaneous
  Country: JP (occurrence: JP)
  Receive Date: 20150206
  Receipt Date: 20150326
  Transmission Date: 20150721
  Serious: Yes (Hospitalization)
  Sender: FDA-Public Use
  Company Number: JP-CUBIST PHARMACEUTICALS, INC.-2015CBST000142

PATIENT

DRUGS (9)
  1. SIGMART [Concomitant]
     Active Substance: NICORANDIL
     Indication: ANGINA PECTORIS
     Dosage: 5 MG, TID
     Route: 048
     Dates: start: 20140628
  2. CUBICIN [Suspect]
     Active Substance: DAPTOMYCIN
     Dosage: 28 MG, ONCE IN TWO DAYS
     Route: 042
     Dates: start: 20140709, end: 20140801
  3. BAYASPIRIN [Concomitant]
     Active Substance: ASPIRIN
     Indication: ANGINA PECTORIS
     Dosage: 100 MG, ONCE A DAY
     Route: 048
     Dates: start: 20140628
  4. ALLOPURINOL. [Concomitant]
     Active Substance: ALLOPURINOL
     Indication: HYPERURICAEMIA
     Dosage: 100 MG, ONCE A DAY
     Route: 048
     Dates: start: 20140628
  5. NEXIUM [Concomitant]
     Active Substance: ESOMEPRAZOLE MAGNESIUM
     Indication: PROPHYLAXIS AGAINST GASTROINTESTINAL ULCER
     Dosage: 20 MG, ONCE A DAY
     Route: 048
     Dates: start: 20140628
  6. PLAVIX [Concomitant]
     Active Substance: CLOPIDOGREL BISULFATE
     Indication: ANGINA PECTORIS
     Dosage: 75 MG, ONCE A DAY
     Route: 048
     Dates: start: 20140628
  7. BENIDIPINE HYDROCHLORIDE [Concomitant]
     Active Substance: BENIDIPINE HYDROCHLORIDE
     Indication: HYPERTENSION
     Dosage: 4 MG, BID
     Route: 048
     Dates: start: 20140628
  8. ATORVASTATIN [Concomitant]
     Active Substance: ATORVASTATIN
     Indication: ANGINA PECTORIS
     Dosage: 25 MG, ONCE A DAY
     Route: 048
     Dates: start: 20140628
  9. CUBICIN [Suspect]
     Active Substance: DAPTOMYCIN
     Indication: POSTOPERATIVE WOUND INFECTION
     Dosage: 0.6 MG/KG, ONCE IN TWO DAYS
     Route: 042
     Dates: start: 20140709, end: 20140801

REACTIONS (3)
  - Pneumonia [Recovered/Resolved]
  - Wound dehiscence [Recovered/Resolved]
  - Pyrexia [Recovered/Resolved]

NARRATIVE: CASE EVENT DATE: 20140720
